FAERS Safety Report 15888343 (Version 2)
Quarter: 2019Q2

REPORT INFORMATION
  Report Type: Spontaneous
  Country: CZ (occurrence: CZ)
  Receive Date: 20190130
  Receipt Date: 20190427
  Transmission Date: 20190711
  Serious: Yes (Hospitalization, Other)
  Sender: FDA-Public Use
  Company Number: CZ-ACCORD-103904

PATIENT
  Age: 45 Year
  Sex: Female

DRUGS (3)
  1. PACLITAXEL/PACLITAXEL LIPOSOME [Suspect]
     Active Substance: PACLITAXEL
     Indication: OVARIAN CANCER
     Dosage: TOTAL OF THREE SERIES OF ADJUVANT CHEMOTHERAPY WERE ADMINISTERED(2010,AUG-2012
     Route: 065
  2. GEMCITABINE/GEMCITABINE HYDROCHLORIDE [Suspect]
     Active Substance: GEMCITABINE\GEMCITABINE HYDROCHLORIDE
     Indication: OVARIAN CANCER
     Route: 065
     Dates: start: 2018
  3. CARBOPLATIN. [Suspect]
     Active Substance: CARBOPLATIN
     Indication: OVARIAN CANCER
     Dosage: TOTAL OF THREE SERIES OF ADJUVANT CHEMOTHERAPY WERE ADMINISTERED(AUG-2012,2017
     Route: 065

REACTIONS (5)
  - Neutropenia [Unknown]
  - Abdominal pain [Unknown]
  - Vomiting [Unknown]
  - Intestinal stenosis [Recovering/Resolving]
  - Dyspepsia [Unknown]
